FAERS Safety Report 6432276-3 (Version None)
Quarter: 2009Q4

REPORT INFORMATION
  Report Type: 
  Country: None (occurrence: None)
  Receive Date: 20091105
  Receipt Date: 20091020
  Transmission Date: 20100525
  Serious: Yes (Hospitalization)
  Sender: FDA-Public Use
  Company Number: 1000009725

PATIENT
  Age: 71 Year
  Sex: Male

DRUGS (2)
  1. MILNACIPRAN         (MILNACIPRAN HYDROCHLORIDE) [Suspect]
     Indication: DEPRESSION
     Dosage: 100 MG, ORAL
     Route: 048
     Dates: start: 20090525, end: 20090925
  2. MILNACIPRAN         (MILNACIPRAN HYDROCHLORIDE) [Suspect]
     Indication: DEPRESSION
     Dosage: 100 MG, ORAL
     Route: 048
     Dates: start: 20091002, end: 20091008

REACTIONS (1)
  - HEPATOCELLULAR INJURY [None]
